FAERS Safety Report 4971312-8 (Version None)
Quarter: 2006Q2

REPORT INFORMATION
  Report Type: 
  Country: None (occurrence: None)
  Receive Date: 20060413
  Receipt Date: 20050713
  Transmission Date: 20061013
  Serious: Yes (Hospitalization, Other)
  Sender: FDA-Public Use
  Company Number: US-MERCK-0507USA01778

PATIENT
  Age: 42 Year
  Sex: Male
  Weight: 98 kg

DRUGS (3)
  1. VIOXX [Suspect]
     Indication: BACK PAIN
     Route: 048
     Dates: start: 19990101, end: 20040401
  2. VIOXX [Suspect]
     Route: 048
     Dates: start: 19990101, end: 20040401
  3. ASPIRIN [Concomitant]
     Route: 065

REACTIONS (3)
  - CEREBROVASCULAR ACCIDENT [None]
  - DEEP VEIN THROMBOSIS [None]
  - TRANSIENT ISCHAEMIC ATTACK [None]
